FAERS Safety Report 5874783-8 (Version None)
Quarter: 2008Q3

REPORT INFORMATION
  Report Type: 
  Country: None (occurrence: None)
  Receive Date: 20080909
  Receipt Date: 20080813
  Transmission Date: 20090109
  Serious: No
  Sender: FDA-Public Use
  Company Number: US-BAYER-200830232NA

PATIENT
  Age: 39 Year
  Sex: Male

DRUGS (2)
  1. LEVITRA [Suspect]
     Indication: ERECTILE DYSFUNCTION
     Dosage: TOTAL DAILY DOSE: 20 MG  UNIT DOSE: 20 MG
     Route: 048
     Dates: start: 20080801
  2. LEVITRA [Suspect]
     Dosage: TOTAL DAILY DOSE: 20 MG  UNIT DOSE: 20 MG
     Route: 048
     Dates: start: 20080803, end: 20080803

REACTIONS (3)
  - CHEST PAIN [None]
  - DIZZINESS [None]
  - ERECTILE DYSFUNCTION [None]
